FAERS Safety Report 6428275-8 (Version None)
Quarter: 2009Q4

REPORT INFORMATION
  Report Type: 
  Country: None (occurrence: None)
  Receive Date: 20091104
  Receipt Date: 20091104
  Transmission Date: 20100525
  Serious: Yes (Hospitalization)
  Sender: FDA-Public Use
  Company Number: None

PATIENT
  Age: 81 Year
  Sex: Male

DRUGS (2)
  1. WARFARIN SODIUM [Suspect]
     Indication: ATRIAL FIBRILLATION
     Dates: start: 20070104
  2. METRONIDAZOLE [Suspect]
     Dosage: 500 MG TID PO
     Route: 048
     Dates: start: 20081027, end: 20081118

REACTIONS (3)
  - CONJUNCTIVAL HAEMORRHAGE [None]
  - EPISTAXIS [None]
  - INTERNATIONAL NORMALISED RATIO ABNORMAL [None]
